FAERS Safety Report 6780999-9 (Version None)
Quarter: 2010Q2

REPORT INFORMATION
  Report Type: 
  Country: None (occurrence: None)
  Receive Date: 20100615
  Receipt Date: 20100531
  Transmission Date: 20101027
  Serious: Yes (Life-Threatening, Other)
  Sender: FDA-Public Use
  Company Number: LEO-2010-00107

PATIENT
  Age: 26 Year
  Sex: Female
  Weight: 47.5 kg

DRUGS (18)
  1. INNOHEP [Suspect]
     Indication: PROPHYLAXIS
     Dosage: 4500 IU (4500 IU,1 IN 1 D),SUBCUTANEOUS; 18000 IU (9000 113,2 IN 1 D),SUBCUTANEOUS
     Route: 058
     Dates: end: 20030331
  2. INNOHEP [Suspect]
     Indication: PROPHYLAXIS
     Dosage: 4500 IU (4500 IU,1 IN 1 D),SUBCUTANEOUS; 18000 IU (9000 113,2 IN 1 D),SUBCUTANEOUS
     Route: 058
     Dates: start: 20020812
  3. ASPIRIN [Concomitant]
  4. FUROSEMIDE [Concomitant]
  5. PROCHLORPERAZINE MALEATE [Concomitant]
  6. FOLIC ACID [Concomitant]
  7. FERROUS SULFATE TAB [Concomitant]
  8. AMOXICILLIN [Concomitant]
  9. CEPHALEXIN [Concomitant]
  10. RANITIDINE [Concomitant]
  11. METOCLOPRAMIDE (METOCLOPRAMIDE) [Concomitant]
  12. SYNTOCINON [Concomitant]
  13. SODIUM CITRATE [Concomitant]
  14. AUGMENTIN '125' [Concomitant]
  15. METARAMINOL (METARAMINOL) [Concomitant]
  16. BUPIVACAINE (BUPIVACAINE) (0.5 PERCENT) [Concomitant]
  17. DIAMORPHINE (DIAMORPHINE) [Concomitant]
  18. ACETAMINOPHEN [Concomitant]

REACTIONS (7)
  - CAESAREAN SECTION [None]
  - DRUG EXPOSURE DURING PREGNANCY [None]
  - FOETAL GROWTH RETARDATION [None]
  - HAEMORRHAGE [None]
  - POSTPARTUM HAEMORRHAGE [None]
  - PRE-ECLAMPSIA [None]
  - PREMATURE LABOUR [None]
